FAERS Safety Report 19057495 (Version 1)
Quarter: 2021Q1

REPORT INFORMATION
  Report Type: Spontaneous
  Country: US (occurrence: US)
  Receive Date: 20210324
  Receipt Date: 20210324
  Transmission Date: 20210420
  Serious: Yes (Other)
  Sender: FDA-Public Use
  Company Number: US-JUBILANT CADISTA PHARMACEUTICALS-2021JUB00036

PATIENT
  Sex: Female

DRUGS (1)
  1. PROCHLORPERAZINE MALEATE. [Suspect]
     Active Substance: PROCHLORPERAZINE MALEATE

REACTIONS (2)
  - Hypersensitivity [Unknown]
  - Reaction to excipient [Unknown]

NARRATIVE: CASE EVENT DATE: 1963
